FAERS Safety Report 6892827-1 (Version None)
Quarter: 2010Q3

REPORT INFORMATION
  Report Type: 
  Country: None (occurrence: None)
  Receive Date: 20100731
  Receipt Date: 20080911
  Transmission Date: 20110219
  Serious: No
  Sender: FDA-Public Use
  Company Number: US-PFIZER INC-2008075658

PATIENT
  Sex: Female

DRUGS (1)
  1. SULFASALAZINE [Suspect]
     Dates: start: 20080813

REACTIONS (3)
  - MELANOCYTIC NAEVUS [None]
  - RASH [None]
  - SKIN PAPILLOMA [None]
